FAERS Safety Report 5655811-1 (Version None)
Quarter: 2008Q1

REPORT INFORMATION
  Report Type: 
  Country: None (occurrence: None)
  Receive Date: 20080307
  Receipt Date: 20080224
  Transmission Date: 20080703
  Serious: Yes (Other)
  Sender: FDA-Public Use
  Company Number: US-PFIZER INC-2008012293

PATIENT
  Sex: Female
  Weight: 68.5 kg

DRUGS (19)
  1. CHANTIX [Suspect]
     Indication: SMOKING CESSATION THERAPY
     Dosage: FREQ:EVERY DAY
  2. ALPRAZOLAM [Concomitant]
     Dosage: DAILY DOSE:1MG
  3. FLEXERIL [Concomitant]
  4. SIMVASTATIN [Concomitant]
     Dosage: DAILY DOSE:40MG
  5. LEVOTHYROXINE SODIUM [Concomitant]
     Dosage: DAILY DOSE:1.75MG
  6. CYMBALTA [Concomitant]
     Dosage: DAILY DOSE:40MG
  7. ALTACE [Concomitant]
     Dosage: DAILY DOSE:5MG
  8. CENTRUM [Concomitant]
  9. ALBUTEROL [Concomitant]
  10. FLOVENT [Concomitant]
  11. NIASPAN [Concomitant]
  12. RISPERDAL [Concomitant]
     Dosage: DAILY DOSE:1MG
  13. NYSTATIN [Concomitant]
     Dosage: DAILY DOSE:500MG
  14. ASPIRIN [Concomitant]
     Dosage: DAILY DOSE:325MG
  15. ALL OTHER THERAPEUTIC PRODUCTS [Concomitant]
  16. FLONASE [Concomitant]
  17. MONTELUKAST SODIUM [Concomitant]
  18. HYDROCODONE BITARTRATE [Concomitant]
     Dosage: TEXT:5/500 MILLIGRAM
  19. VITAMINS [Concomitant]

REACTIONS (2)
  - PARANOIA [None]
  - WEIGHT INCREASED [None]
